FAERS Safety Report 23438352 (Version 3)
Quarter: 2024Q3

REPORT INFORMATION
  Report Type: Spontaneous
  Country: CA (occurrence: CA)
  Receive Date: 20240124
  Receipt Date: 20240802
  Transmission Date: 20241017
  Serious: Yes (Other)
  Sender: PFIZER
  Company Number: CA-PFIZER INC-2021852107

PATIENT
  Age: 62 Year
  Sex: Male

DRUGS (8)
  1. SOMAVERT [Suspect]
     Active Substance: PEGVISOMANT
     Indication: Acromegaly
     Dosage: 10 MG, 1X/DAY
     Route: 058
     Dates: start: 20210520, end: 2021
  2. SOMAVERT [Suspect]
     Active Substance: PEGVISOMANT
     Dosage: 15 MG, 1X/DAY
     Route: 058
     Dates: start: 2021
  3. CABERGOLINE [Concomitant]
     Active Substance: CABERGOLINE
     Indication: Acromegaly
     Dosage: 1 MG, 2X/WEEK (TWO TABS WEEKLY, STATUS: ONGOING)
     Route: 065
     Dates: start: 202008
  4. CABERGOLINE [Concomitant]
     Active Substance: CABERGOLINE
     Dosage: 0.5 MG, 2X/DAY (BID)
     Route: 065
  5. LANREOTIDE [Concomitant]
     Active Substance: LANREOTIDE
     Dosage: 1 DF
     Route: 065
  6. LANREOTIDE [Concomitant]
     Active Substance: LANREOTIDE
     Dosage: 1 DF
     Route: 065
  7. LANREOTIDE [Concomitant]
     Active Substance: LANREOTIDE
     Dosage: 1 DF, EVERY 28 DAY, DOSE UNKNOWN
     Route: 065
     Dates: start: 2022, end: 2022
  8. LANREOTIDE [Concomitant]
     Active Substance: LANREOTIDE
     Dosage: 1 DF EVERY 21 DAYS, DOSE UNKNOWN
     Route: 065
     Dates: start: 2022

REACTIONS (10)
  - Pituitary tumour [Unknown]
  - Oxygen saturation decreased [Not Recovered/Not Resolved]
  - Heart rate decreased [Not Recovered/Not Resolved]
  - Blood pressure increased [Not Recovered/Not Resolved]
  - Blood glucose increased [Not Recovered/Not Resolved]
  - Cold sweat [Unknown]
  - Insulin-like growth factor decreased [Recovered/Resolved]
  - Fat tissue increased [Unknown]
  - Pain in extremity [Unknown]
  - Foot deformity [Unknown]

NARRATIVE: CASE EVENT DATE: 20210101
